FAERS Safety Report 18185844 (Version 1)
Quarter: 2020Q3

REPORT INFORMATION
  Report Type: Spontaneous
  Country: US (occurrence: US)
  Receive Date: 20200824
  Receipt Date: 20200824
  Transmission Date: 20201103
  Serious: No
  Sender: FDA-Public Use
  Company Number: US-SA-2020SA217817

PATIENT

DRUGS (2)
  1. LANTUS SOLOSTAR [Suspect]
     Active Substance: INSULIN GLARGINE
     Dosage: 20 IU, QD
     Route: 065
     Dates: start: 20200517, end: 2020
  2. NOVOLOG [Concomitant]
     Active Substance: INSULIN ASPART
     Dosage: UNK
     Route: 065

REACTIONS (3)
  - Nausea [Unknown]
  - Weight decreased [Unknown]
  - Myalgia [Unknown]

NARRATIVE: CASE EVENT DATE: 20200817
